FAERS Safety Report 11950422 (Version 2)
Quarter: 2016Q1

REPORT INFORMATION
  Report Type: Spontaneous
  Country: US (occurrence: US)
  Receive Date: 20160126
  Receipt Date: 20160218
  Transmission Date: 20160526
  Serious: Yes (Death, Other)
  Sender: FDA-Public Use
  Company Number: US-ASTELLAS-2016US002197

PATIENT
  Age: 59 Year
  Sex: Male

DRUGS (1)
  1. LEXISCAN [Suspect]
     Active Substance: REGADENOSON
     Indication: CARDIAC STRESS TEST
     Dosage: UNK, TOTAL DOSE
     Route: 042

REACTIONS (6)
  - Dyspnoea [Unknown]
  - Ventricular tachycardia [Unknown]
  - Cardiac arrest [Fatal]
  - Ischaemia [Unknown]
  - Electrocardiogram QRS complex prolonged [Unknown]
  - Nausea [Unknown]
